FAERS Safety Report 7671994-6 (Version None)
Quarter: 2011Q3

REPORT INFORMATION
  Report Type: 
  Country: None (occurrence: None)
  Receive Date: 20110809
  Receipt Date: 20110729
  Transmission Date: 20111222
  Serious: No
  Sender: FDA-Public Use
  Company Number: US-CEPHALON-2011004031

PATIENT
  Sex: Female

DRUGS (2)
  1. FENTORA [Suspect]
     Route: 002
  2. PROMETHAZINE [Concomitant]

REACTIONS (3)
  - ACCIDENTAL EXPOSURE [None]
  - HYPERHIDROSIS [None]
  - VOMITING [None]
